FAERS Safety Report 5476578-6 (Version None)
Quarter: 2007Q4

REPORT INFORMATION
  Report Type: 
  Country: None (occurrence: None)
  Receive Date: 20071004
  Receipt Date: 20070927
  Transmission Date: 20080405
  Serious: Yes (Hospitalization)
  Sender: FDA-Public Use
  Company Number: PHBS2007BE16291

PATIENT
  Sex: Male

DRUGS (1)
  1. SANDOSTATIN LAR [Suspect]
     Indication: DIARRHOEA
     Route: 065

REACTIONS (3)
  - ANGINA PECTORIS [None]
  - HYPOKALAEMIA [None]
  - INTESTINAL OBSTRUCTION [None]
